FAERS Safety Report 7768270-X (Version None)
Quarter: 2011Q3

REPORT INFORMATION
  Report Type: 
  Country: None (occurrence: None)
  Receive Date: 20110922
  Receipt Date: 20101025
  Transmission Date: 20111222
  Serious: No
  Sender: FDA-Public Use
  Company Number: US-ASTRAZENECA-2010SE50611

PATIENT
  Age: 434 Month
  Sex: Female
  Weight: 47.6 kg

DRUGS (6)
  1. SEROQUEL XR [Suspect]
     Dosage: HALF TABLETS AT NIGHTS
     Route: 048
  2. CLONAZEPAM [Concomitant]
  3. SEROQUEL XR [Suspect]
     Dosage: HALF TABLETS AT NIGHTS
     Route: 048
  4. LAMICTAL [Concomitant]
  5. SEROQUEL XR [Suspect]
     Indication: DEPRESSION
     Dosage: UNKNOWN DOSE AT NIGHTS
     Route: 048
     Dates: start: 20090101
  6. SEROQUEL XR [Suspect]
     Indication: SEROTONIN SYNDROME
     Dosage: UNKNOWN DOSE AT NIGHTS
     Route: 048
     Dates: start: 20090101

REACTIONS (4)
  - HEADACHE [None]
  - FEELING JITTERY [None]
  - WRONG TECHNIQUE IN DRUG USAGE PROCESS [None]
  - NERVOUSNESS [None]
